FAERS Safety Report 21928374 (Version 1)
Quarter: 2023Q1

REPORT INFORMATION
  Report Type: Spontaneous
  Country: DE (occurrence: DE)
  Receive Date: 20230130
  Receipt Date: 20230130
  Transmission Date: 20230418
  Serious: Yes (Other)
  Sender: FDA-Public Use
  Company Number: DE-BRISTOL-MYERS SQUIBB COMPANY-2023-012998

PATIENT
  Age: 59 Year
  Sex: Male
  Weight: 50 kg

DRUGS (6)
  1. ABECMA [Suspect]
     Active Substance: IDECABTAGENE VICLEUCEL
     Indication: Plasma cell myeloma
     Dosage: 468.91X 10^6 CELLS
     Route: 042
     Dates: start: 20220823
  2. CYCLOPHOSPHAMIDE [Concomitant]
     Active Substance: CYCLOPHOSPHAMIDE
     Indication: Plasma cell myeloma
     Dosage: CUMULATIVE 900 MG/KG BW
     Route: 042
     Dates: start: 20220818, end: 20220820
  3. FLUDARABINE [Concomitant]
     Active Substance: FLUDARABINE PHOSPHATE
     Indication: Plasma cell myeloma
     Dosage: CUMULATIVE 90 MG/M2
     Route: 042
     Dates: start: 20220818, end: 20220820
  4. ACYCLOVIR [Concomitant]
     Active Substance: ACYCLOVIR
  5. SULFAMETHOXAZOLE\TRIMETHOPRIM [Concomitant]
     Active Substance: SULFAMETHOXAZOLE\TRIMETHOPRIM
     Dosage: MONDAY WEDNESDAY FRIDAY
  6. PANTOPRAZOLE [Concomitant]
     Active Substance: PANTOPRAZOLE
     Dosage: 1-0-0

REACTIONS (3)
  - Cytokine release syndrome [Unknown]
  - Staphylococcal bacteraemia [Unknown]
  - Plasma cell myeloma [Unknown]

NARRATIVE: CASE EVENT DATE: 20220826
